FAERS Safety Report 6890673-6 (Version None)
Quarter: 2010Q3

REPORT INFORMATION
  Report Type: 
  Country: None (occurrence: None)
  Receive Date: 20100731
  Receipt Date: 20090202
  Transmission Date: 20110219
  Serious: No
  Sender: FDA-Public Use
  Company Number: US-PFIZER INC-2008152504

PATIENT
  Sex: Female

DRUGS (1)
  1. LIPITOR [Suspect]
     Dosage: 80 MG, 1X/DAY
     Route: 048

REACTIONS (3)
  - HYPERSENSITIVITY [None]
  - LIPIDS ABNORMAL [None]
  - SUNBURN [None]
